FAERS Safety Report 7424444-9 (Version None)
Quarter: 2011Q2

REPORT INFORMATION
  Report Type: 
  Country: None (occurrence: None)
  Receive Date: 20110419
  Receipt Date: 20110405
  Transmission Date: 20111010
  Serious: Yes (Hospitalization, Other)
  Sender: FDA-Public Use
  Company Number: US-CELGENEUS-163-21880-11023018

PATIENT
  Sex: Female
  Weight: 53.572 kg

DRUGS (10)
  1. BENADRYL [Concomitant]
     Route: 065
  2. CLOPIDOGREL [Concomitant]
     Dosage: DAILY
     Route: 065
  3. LISINOPRIL [Concomitant]
     Dosage: DAILY
     Route: 065
  4. ASPIRIN [Concomitant]
     Route: 065
  5. VITAMIN E [Concomitant]
     Route: 065
  6. MULTIVITAMIN [Concomitant]
     Route: 065
  7. REVLIMID [Suspect]
     Indication: MYELODYSPLASTIC SYNDROME
     Dosage: 5 MILLIGRAM
     Route: 048
     Dates: start: 20091001, end: 20110124
  8. LEVOTHYROXINE SODIUM [Concomitant]
     Dosage: DAILY
     Route: 065
  9. METOCLOPRAMIDE [Concomitant]
     Route: 065
  10. LANSOPRAZOLE [Concomitant]
     Dosage: AS DIRECTED
     Route: 065

REACTIONS (4)
  - WHITE BLOOD CELL COUNT INCREASED [None]
  - BLOOD PRESSURE SYSTOLIC INCREASED [None]
  - FATIGUE [None]
  - PNEUMONIA [None]
